FAERS Safety Report 5912347-8 (Version None)
Quarter: 2008Q4

REPORT INFORMATION
  Report Type: 
  Country: None (occurrence: None)
  Receive Date: 20081007
  Receipt Date: 20081007
  Transmission Date: 20090506
  Serious: Yes (Hospitalization)
  Sender: FDA-Public Use
  Company Number: None

PATIENT
  Age: 59 Year
  Sex: Male

DRUGS (4)
  1. WARFARIN SODIUM [Suspect]
     Indication: CARDIAC VALVE DISEASE
     Dosage: 10MG DAILY PO
     Route: 048
  2. WARFARIN SODIUM [Suspect]
     Indication: THROMBOSIS PROPHYLAXIS
     Dosage: 10MG DAILY PO
     Route: 048
  3. LOVENOX [Suspect]
     Indication: DEEP VEIN THROMBOSIS
     Dosage: 80MG BID SQ
     Route: 058
     Dates: start: 20080909, end: 20080913
  4. ATENOLOL [Concomitant]

REACTIONS (3)
  - ARTHRALGIA [None]
  - HAEMATOMA [None]
  - JOINT SWELLING [None]
